FAERS Safety Report 23594495 (Version 1)
Quarter: 2024Q1

REPORT INFORMATION
  Report Type: Spontaneous
  Country: CN (occurrence: CN)
  Receive Date: 20240305
  Receipt Date: 20240305
  Transmission Date: 20240410
  Serious: Yes (Hospitalization)
  Sender: FDA-Public Use
  Company Number: CN-HALEON-CNCH2024APC011860

PATIENT

DRUGS (4)
  1. IBUPROFEN [Suspect]
     Active Substance: IBUPROFEN
     Indication: Asthma
     Dosage: 0.3 G, QD
     Route: 048
     Dates: start: 20231225, end: 20231229
  2. IBUPROFEN [Suspect]
     Active Substance: IBUPROFEN
     Indication: Pyrexia
  3. CEFDINIR [Suspect]
     Active Substance: CEFDINIR
     Indication: Asthma
     Dosage: 0.1 G, TID
     Route: 048
     Dates: start: 20231225, end: 20231229
  4. CEFDINIR [Suspect]
     Active Substance: CEFDINIR
     Indication: Pyrexia

REACTIONS (4)
  - Hepatic function abnormal [Recovering/Resolving]
  - Drug ineffective for unapproved indication [Recovering/Resolving]
  - Inappropriate schedule of product administration [Recovering/Resolving]
  - Product use in unapproved indication [Recovering/Resolving]

NARRATIVE: CASE EVENT DATE: 20231225
